FAERS Safety Report 5331938-9 (Version None)
Quarter: 2007Q2

REPORT INFORMATION
  Report Type: 
  Country: None (occurrence: None)
  Receive Date: 20070523
  Receipt Date: 20070510
  Transmission Date: 20071010
  Serious: Yes (Hospitalization)
  Sender: FDA-Public Use
  Company Number: AU-SANOFI-SYNTHELABO-A01200704962

PATIENT
  Age: 72 Year
  Sex: Male

DRUGS (7)
  1. NATURE'S OWN GLUCOSAMINE 1500 [Concomitant]
     Dosage: UNK
     Route: 065
  2. VITAMIN CAP [Concomitant]
     Dosage: UNK
     Route: 065
  3. DIAFORMIN [Concomitant]
     Dosage: UNK
     Route: 065
  4. MICARDIS PLUS 80/12.5 [Concomitant]
     Dosage: UNK
     Route: 065
  5. MIXTARD 50/50 HUMAN [Concomitant]
     Dosage: UNK
     Route: 065
  6. AROPAX [Concomitant]
     Dosage: UNK
     Route: 065
  7. STILNOX [Suspect]
     Indication: SLEEP DISORDER
     Route: 048
     Dates: start: 20070131, end: 20070131

REACTIONS (5)
  - AMNESIA [None]
  - DELIRIUM [None]
  - OVERDOSE [None]
  - SLEEP WALKING [None]
  - SUICIDAL IDEATION [None]
